FAERS Safety Report 8766672 (Version 1)
Quarter: 2012Q4

REPORT INFORMATION
  Report Type: Report from Study
  Country: BE (occurrence: BE)
  Receive Date: 20120904
  Receipt Date: 20120904
  Transmission Date: 20130627
  Serious: Yes (Life-Threatening, Hospitalization)
  Sender: FDA-Public Use
  Company Number: BE-AMGEN-BELCT2012053605

PATIENT
  Age: 44 Year
  Sex: Male
  Weight: 88 kg

DRUGS (3)
  1. ETANERCEPT [Suspect]
     Indication: PSORIATIC ARTHROPATHY
     Dosage: 25 mg, 2 times/wk
     Route: 058
     Dates: start: 20041215, end: 20050912
  2. LIPITOR [Concomitant]
     Dosage: UNK
     Route: 048
     Dates: start: 2004
  3. LEDERTREXATE                       /00113801/ [Concomitant]
     Dosage: 10 mg, weekly
     Route: 048
     Dates: start: 20041215, end: 20050912

REACTIONS (2)
  - Pulmonary embolism [Recovered/Resolved]
  - Deep vein thrombosis [Recovered/Resolved]
